FAERS Safety Report 25090572 (Version 1)
Quarter: 2025Q1

REPORT INFORMATION
  Report Type: Spontaneous
  Country: US (occurrence: None)
  Receive Date: 20250318
  Receipt Date: 20250318
  Transmission Date: 20250409
  Serious: Yes (Other)
  Sender: FDA-CTU
  Company Number: None

PATIENT
  Age: 44 Year
  Sex: Female
  Weight: 74.25 kg

DRUGS (5)
  1. BABO BOTANICALS DAILY SHEER FLUID MINERAL SUNSCREEN SPF 50 [Suspect]
     Active Substance: ZINC OXIDE
     Indication: Prophylaxis against solar radiation
     Route: 061
     Dates: start: 20241014, end: 20241116
  2. Mesalamin [Concomitant]
  3. VITAMIN D [Concomitant]
     Active Substance: VITAMIN D NOS
  4. B12 [Concomitant]
  5. IRON [Concomitant]
     Active Substance: IRON

REACTIONS (7)
  - Skin burning sensation [None]
  - Swelling [None]
  - Skin discolouration [None]
  - Pustule [None]
  - Blister [None]
  - Product complaint [None]
  - Hypersensitivity [None]

NARRATIVE: CASE EVENT DATE: 20241014
